FAERS Safety Report 5525089-8 (Version None)
Quarter: 2007Q4

REPORT INFORMATION
  Report Type: 
  Country: None (occurrence: None)
  Receive Date: 20071126
  Receipt Date: 20071121
  Transmission Date: 20080405
  Serious: Yes (Hospitalization)
  Sender: FDA-Public Use
  Company Number: DE-WYE-G00648607

PATIENT
  Sex: Female
  Weight: 70 kg

DRUGS (2)
  1. TREVILOR [Suspect]
     Dosage: OVERDOSE AMOUNT UNKNOWN
     Route: 048
     Dates: start: 20071120, end: 20071120
  2. LAMOTRIGINE [Suspect]
     Dosage: OVERDOSE AMOUNT UNKNOWN
     Route: 048
     Dates: start: 20071120, end: 20071120

REACTIONS (3)
  - COMA [None]
  - INTENTIONAL OVERDOSE [None]
  - RESPIRATORY DEPRESSION [None]
